FAERS Safety Report 24761302 (Version 1)
Quarter: 2024Q4

REPORT INFORMATION
  Report Type: Spontaneous
  Country: JP (occurrence: JP)
  Receive Date: 20241220
  Receipt Date: 20241220
  Transmission Date: 20250114
  Serious: Yes (Death)
  Sender: MAYNE
  Company Number: JP-MAYNE PHARMA-2024MYN000607

PATIENT

DRUGS (4)
  1. TOLSURA [Suspect]
     Active Substance: ITRACONAZOLE
     Indication: Sinusitis
     Dosage: 200 MG, BID,
     Route: 048
  2. TOLSURA [Suspect]
     Active Substance: ITRACONAZOLE
     Dosage: 200 MG, QD
     Route: 048
  3. AMPHOTERICIN LIPOSOMAL SUN [Concomitant]
     Indication: Sinusitis
     Dosage: 250 MG, QD
     Route: 065
  4. VORICONAZOLE [Concomitant]
     Active Substance: VORICONAZOLE
     Indication: Sinusitis
     Route: 065

REACTIONS (3)
  - Cardiac failure [Fatal]
  - Off label use [Unknown]
  - Drug effective for unapproved indication [Unknown]
